FAERS Safety Report 4614286-1 (Version None)
Quarter: 2005Q1

REPORT INFORMATION
  Report Type: 
  Country: None (occurrence: None)
  Receive Date: 20050315
  Receipt Date: 20041115
  Transmission Date: 20050727
  Serious: Yes (Hospitalization)
  Sender: FDA-Public Use
  Company Number: F01200403625

PATIENT
  Age: 62 Year
  Sex: Male
  Weight: 83.9 kg

DRUGS (15)
  1. OXALIPLATIN SOLUTION 130MG/M2 [Suspect]
     Indication: NON-SMALL CELL LUNG CANCER
     Dosage: 130 MG/M2 Q3W INTRAVENOUS NOS
     Route: 042
     Dates: start: 20041110, end: 20041110
  2. GEMCITABINE SOLUTION 1000 MG/M2 [Suspect]
     Dosage: 1000 MG/M2 Q3W INTRAVENOUS NOS
     Route: 042
     Dates: start: 20041110, end: 20041110
  3. HYDROCODONE, PHENYLTOLOXAMINE [Concomitant]
  4. HYDROCODONE [Concomitant]
  5. OXYCODONE [Concomitant]
  6. MORPHINE SULFATE [Concomitant]
  7. GRANISETRON [Concomitant]
  8. DEXAMETHASONE [Concomitant]
  9. CALCIUM GLUCONATE [Concomitant]
  10. MAGNESIUM SULFATE [Concomitant]
  11. MILK OF MAGNESIA [Concomitant]
  12. OXYCODONE HCL [Concomitant]
  13. LORAZEPAM [Concomitant]
  14. PROCHLORPERAZINE EDISYLATE [Concomitant]
  15. PANTOPRAZOLE SODIUM [Concomitant]

REACTIONS (4)
  - ABASIA [None]
  - ATRIAL FIBRILLATION [None]
  - BONE PAIN [None]
  - CHEST PAIN [None]
